FAERS Safety Report 10384062 (Version 4)
Quarter: 2015Q2

REPORT INFORMATION
  Report Type: Spontaneous
  Country: US (occurrence: US)
  Receive Date: 20140814
  Receipt Date: 20150525
  Transmission Date: 20150821
  Serious: Yes (Hospitalization)
  Sender: FDA-Public Use
  Company Number: US-JNJFOC-20140808196

PATIENT
  Sex: Female
  Weight: 63.5 kg

DRUGS (1)
  1. XARELTO [Suspect]
     Active Substance: RIVAROXABAN
     Indication: THROMBOSIS
     Route: 048
     Dates: start: 2013

REACTIONS (5)
  - Fistula [Recovered/Resolved]
  - Blood blister [Recovered/Resolved]
  - Oedema peripheral [Not Recovered/Not Resolved]
  - Incorrect dose administered [Unknown]
  - Surgery [Unknown]

NARRATIVE: CASE EVENT DATE: 2014
